FAERS Safety Report 7460147-2 (Version None)
Quarter: 2011Q2

REPORT INFORMATION
  Report Type: 
  Country: None (occurrence: None)
  Receive Date: 20110505
  Receipt Date: 20110427
  Transmission Date: 20111010
  Serious: Yes (Disabling, Other)
  Sender: FDA-Public Use
  Company Number: US-ELI_LILLY_AND_COMPANY-US201104007846

PATIENT
  Sex: Female

DRUGS (10)
  1. COREG [Concomitant]
     Dosage: UNK
  2. HUMALOG [Suspect]
     Dosage: UNK, OTHER
  3. HUMALOG [Suspect]
     Dosage: UNK, OTHER
  4. MICARDIS [Concomitant]
     Dosage: UNK
  5. HUMALOG [Suspect]
     Indication: DIABETES MELLITUS
     Dosage: UNK, OTHER
     Dates: start: 19870101
  6. OSCAL [Concomitant]
     Dosage: UNK
  7. ASPIRIN [Concomitant]
     Dosage: UNK
  8. NORVASC [Concomitant]
     Dosage: UNK
  9. IMDUR [Concomitant]
     Dosage: UNK
  10. LIPITOR [Concomitant]
     Dosage: UNK

REACTIONS (10)
  - CARDIAC DISORDER [None]
  - INCORRECT DOSE ADMINISTERED [None]
  - BLOOD GLUCOSE FLUCTUATION [None]
  - DEPRESSION [None]
  - MEMORY IMPAIRMENT [None]
  - CORONARY ARTERY BYPASS [None]
  - VISUAL IMPAIRMENT [None]
  - STRESS [None]
  - MACULAR DEGENERATION [None]
  - OVERWEIGHT [None]
